FAERS Safety Report 9305785 (Version 2)
Quarter: 2013Q2

REPORT INFORMATION
  Report Type: Spontaneous
  Country: GB (occurrence: None)
  Receive Date: 20130513
  Receipt Date: 20130613
  Transmission Date: 20140414
  Serious: Yes (Hospitalization)
  Sender: FDA-Public Use
  Company Number: 2013035931

PATIENT
  Age: 48 Year
  Sex: Male

DRUGS (10)
  1. PRIVIGEN [Suspect]
     Indication: IMMUNODEFICIENCY COMMON VARIABLE
     Dosage: 40 G 1X/3 WEEKS, DURATION OF THEAPY 3-4 HOURS
     Route: 042
     Dates: start: 20130408, end: 20130409
  2. INSULIN INJECTION, BIPHASIC (INSULIN INJECTION BIPHASIC) [Concomitant]
  3. CLOPIDOGREL (CLOPIDOGREL) [Concomitant]
  4. OMEPRAZOLE (OMEPRAZOLE) [Concomitant]
  5. METFORMIN (METFORMIN) [Concomitant]
  6. ALL OTHER THERAPEUTIC PRODUCTS (ALL OTHER THERAPEUTIC PRODUCTS) [Concomitant]
  7. DILTIAZEM [Concomitant]
  8. SALBUTAMOL (SALBUTAMOL) [Concomitant]
  9. ISOSORBIDE MONONITRATE (ISOSORBIDE MONONITRATE) [Concomitant]
  10. PREDNISOLONE (PREDNISOLONE) [Concomitant]

REACTIONS (8)
  - Malaise [None]
  - Acute myocardial infarction [None]
  - Chest pain [None]
  - Feeling cold [None]
  - Chills [None]
  - General physical health deterioration [None]
  - Influenza like illness [None]
  - Lethargy [None]
